FAERS Safety Report 18625515 (Version 13)
Quarter: 2023Q4

REPORT INFORMATION
  Report Type: Spontaneous
  Country: DE (occurrence: DE)
  Receive Date: 20201216
  Receipt Date: 20231213
  Transmission Date: 20240110
  Serious: Yes (Other)
  Sender: FDA-Public Use
  Company Number: DE-ABBVIE-20K-062-3682730-00

PATIENT
  Age: 44 Year
  Sex: Male

DRUGS (11)
  1. TALTZ [Suspect]
     Active Substance: IXEKIZUMAB
     Indication: Psoriatic arthropathy
     Dosage: ONLY 2 ADMINISTRATIONS
     Route: 065
     Dates: start: 201803, end: 201812
  2. TALTZ [Suspect]
     Active Substance: IXEKIZUMAB
     Dosage: UNK, UNKNOWN
     Route: 065
  3. APREMILAST [Suspect]
     Active Substance: APREMILAST
     Indication: Psoriatic arthropathy
     Dosage: UNK, UNKNOWN
     Route: 065
  4. GOLIMUMAB [Suspect]
     Active Substance: GOLIMUMAB
     Indication: Psoriatic arthropathy
     Dosage: UNK, UNKNOWN
     Route: 065
  5. LEFLUNOMIDE [Suspect]
     Active Substance: LEFLUNOMIDE
     Indication: Psoriatic arthropathy
     Dosage: UNK, UNKNOWN
     Route: 065
  6. METHOTREXATE [Suspect]
     Active Substance: METHOTREXATE
     Indication: Psoriatic arthropathy
     Dosage: UNK UNK, UNKNOWN
     Route: 058
     Dates: start: 2015
  7. METHOTREXATE [Suspect]
     Active Substance: METHOTREXATE
     Dosage: 10 MG, EVERY 2 WEEKS
     Route: 058
     Dates: end: 2015
  8. COSENTYX [Suspect]
     Active Substance: SECUKINUMAB
     Indication: Psoriatic arthropathy
     Dosage: UNK, UNKNOWN
     Route: 065
     Dates: start: 201801, end: 201803
  9. ADALIMUMAB [Suspect]
     Active Substance: ADALIMUMAB\ISOPROPYL ALCOHOL
     Indication: Psoriatic arthropathy
     Dosage: UNK, UNKNOWN
     Route: 058
  10. ETANERCEPT [Suspect]
     Active Substance: ETANERCEPT
     Indication: Psoriatic arthropathy
     Dosage: UNK, UNKNOWN
     Route: 065
  11. SECUKINUMAB [Suspect]
     Active Substance: SECUKINUMAB
     Indication: Psoriatic arthropathy
     Dosage: UNK, UNKNOWN
     Route: 065
     Dates: start: 201801, end: 201803

REACTIONS (5)
  - Hypertension [Unknown]
  - Gastrointestinal disorder [Unknown]
  - Angioedema [Unknown]
  - Intestinal haemorrhage [Unknown]
  - Injection site reaction [Unknown]

NARRATIVE: CASE EVENT DATE: 20180101
